FAERS Safety Report 5580553-0 (Version None)
Quarter: 2007Q4

REPORT INFORMATION
  Report Type: 
  Country: None (occurrence: None)
  Receive Date: 20071231
  Receipt Date: 20071231
  Transmission Date: 20080405
  Serious: Yes (Life-Threatening)
  Sender: FDA-Public Use
  Company Number: None

PATIENT
  Age: 34 Year
  Sex: Female
  Weight: 76 kg

DRUGS (6)
  1. ZIDOVUDINE [Suspect]
     Dosage: 300 MG BD ORAL
     Route: 048
  2. LAMIVUDINE [Suspect]
     Dosage: 150 MG BD ORAL
     Route: 048
  3. NEVIRAPINE [Suspect]
     Dosage: 200 MG BD ORAL
     Route: 048
  4. VITAMIN B [Concomitant]
  5. ASCORBIC ACID [Concomitant]
  6. EYE DROPS [Concomitant]

REACTIONS (9)
  - ABDOMINAL DISTENSION [None]
  - ABDOMINAL PAIN [None]
  - CERVICAL INCOMPETENCE [None]
  - DRUG EXPOSURE DURING PREGNANCY [None]
  - HEART RATE INCREASED [None]
  - IMMINENT ABORTION [None]
  - PREGNANCY [None]
  - TENDERNESS [None]
  - VAGINAL HAEMORRHAGE [None]
